FAERS Safety Report 6937109-4 (Version None)
Quarter: 2010Q3

REPORT INFORMATION
  Report Type: 
  Country: None (occurrence: None)
  Receive Date: 20100817
  Receipt Date: 20100805
  Transmission Date: 20110219
  Serious: Yes (Hospitalization)
  Sender: FDA-Public Use
  Company Number: 2010S1000694

PATIENT
  Age: 61 Year
  Sex: Female

DRUGS (8)
  1. LIVALO [Suspect]
     Indication: HYPERCHOLESTEROLAEMIA
     Dosage: 2 MG;1X;PO; 2 MG;1X;PO
     Route: 048
     Dates: start: 20050126, end: 20090322
  2. LIVALO [Suspect]
     Indication: HYPERCHOLESTEROLAEMIA
     Dosage: 2 MG;1X;PO; 2 MG;1X;PO
     Route: 048
     Dates: start: 20090323
  3. BLOPRESS (CON.) [Concomitant]
  4. CALBLOCK (CON.) [Concomitant]
  5. LASIX /00032601/(CON.) [Concomitant]
  6. AMARYL (CON.) [Concomitant]
  7. NOVORAPID (CON.) [Concomitant]
  8. LANTUS (CON.) [Concomitant]

REACTIONS (4)
  - BLOOD GLUCOSE INCREASED [None]
  - DECREASED APPETITE [None]
  - DEPRESSED LEVEL OF CONSCIOUSNESS [None]
  - UPPER RESPIRATORY TRACT INFLAMMATION [None]
